FAERS Safety Report 19872789 (Version 1)
Quarter: 2021Q3

REPORT INFORMATION
  Report Type: Report from Study
  Country: None (occurrence: CA)
  Receive Date: 20210923
  Receipt Date: 20210923
  Transmission Date: 20211014
  Serious: Yes (Hospitalization, Other)
  Sender: FDA-Public Use
  Company Number: CA-ABBVIE-21K-028-4036625-00

PATIENT
  Age: 61 Year
  Sex: Male
  Weight: 80.81 kg

DRUGS (7)
  1. METHOTREXATE. [Concomitant]
     Active Substance: METHOTREXATE
     Indication: RHEUMATOID NODULE
     Route: 048
     Dates: start: 2021
  2. METHOTREXATE. [Concomitant]
     Active Substance: METHOTREXATE
     Indication: LARGE GRANULAR LYMPHOCYTOSIS
     Dates: start: 200712, end: 201412
  3. COVID?19 VACCINE [Concomitant]
     Indication: COVID-19 IMMUNISATION
     Route: 030
     Dates: start: 20210529, end: 20210529
  4. RABEPRAZOLE [Concomitant]
     Active Substance: RABEPRAZOLE
     Indication: PRODUCT USED FOR UNKNOWN INDICATION
     Route: 048
  5. SIMPONI [Concomitant]
     Active Substance: GOLIMUMAB
     Indication: PRODUCT USED FOR UNKNOWN INDICATION
     Dates: start: 20190102
  6. HUMIRA [Suspect]
     Active Substance: ADALIMUMAB
     Indication: RHEUMATOID ARTHRITIS
     Route: 058
     Dates: start: 20190622, end: 202012
  7. PEGFILGRASTIM [Concomitant]
     Active Substance: PEGFILGRASTIM
     Indication: PRODUCT USED FOR UNKNOWN INDICATION
     Route: 058

REACTIONS (15)
  - Tooth disorder [Recovering/Resolving]
  - Bursitis [Unknown]
  - Febrile neutropenia [Unknown]
  - Joint range of motion decreased [Unknown]
  - Joint swelling [Recovered/Resolved]
  - Arthralgia [Unknown]
  - Large granular lymphocytosis [Not Recovered/Not Resolved]
  - Anal fissure [Recovering/Resolving]
  - Infection [Unknown]
  - Musculoskeletal discomfort [Unknown]
  - Arthropathy [Unknown]
  - Tendon disorder [Unknown]
  - Arthritis [Unknown]
  - Gingival disorder [Recovering/Resolving]
  - Arthralgia [Recovered/Resolved]

NARRATIVE: CASE EVENT DATE: 202012
